FAERS Safety Report 10142519 (Version 2)
Quarter: 2014Q2

REPORT INFORMATION
  Report Type: Spontaneous
  Country: US (occurrence: US)
  Receive Date: 20140430
  Receipt Date: 20140521
  Transmission Date: 20141212
  Serious: Yes (Other)
  Sender: FDA-Public Use
  Company Number: US-BEH-2014041989

PATIENT
  Age: 16 Year
  Sex: Male
  Weight: 57 kg

DRUGS (7)
  1. HIZENTRA [Suspect]
     Indication: HYPOGAMMAGLOBULINAEMIA
     Dosage: STARTED IN FEB-2011; INFUSES ON FRIDAYS
  2. HIZENTRA [Suspect]
     Indication: IMMUNODEFICIENCY COMMON VARIABLE
     Dosage: STARTED IN FEB-2011; INFUSES ON FRIDAYS
     Route: 058
  3. ESCITALOPRAM [Concomitant]
     Route: 048
  4. NEXIUM [Concomitant]
     Route: 048
  5. PULMICORT [Concomitant]
     Route: 048
  6. VYVANSE [Concomitant]
     Route: 048
  7. ZYRTEC [Concomitant]
     Route: 048

REACTIONS (2)
  - Hepatitis B core antibody positive [Recovered/Resolved]
  - Hepatitis B core antibody positive [Recovered/Resolved]
